FAERS Safety Report 9026660 (Version 3)
Quarter: 2013Q3

REPORT INFORMATION
  Report Type: Spontaneous
  Country: CA (occurrence: None)
  Receive Date: 20130108
  Receipt Date: 20130729
  Transmission Date: 20140515
  Serious: Yes (Disabling)
  Sender: FDA-Public Use
  Company Number: CA-145364

PATIENT
  Age: 30 Year
  Sex: Female
  Weight: 81.65 kg

DRUGS (3)
  1. WINRHO [Suspect]
     Indication: PROPHYLAXIS AGAINST RH ISOIMMUNISATION
     Dosage: 120 UG   TOTAL INTRAMUSCULAR
     Route: 030
     Dates: start: 20120921, end: 20120921
  2. PRENATAL VITAMINS [Concomitant]
  3. LIDOCAINE [Concomitant]

REACTIONS (3)
  - Serum sickness [None]
  - Gait disturbance [None]
  - Contusion [None]
